FAERS Safety Report 10610608 (Version 8)
Quarter: 2015Q3

REPORT INFORMATION
  Report Type: Spontaneous
  Country: US (occurrence: US)
  Receive Date: 20141126
  Receipt Date: 20150918
  Transmission Date: 20151125
  Serious: Yes (Hospitalization, Other)
  Sender: FDA-Public Use
  Company Number: PHHY2014US066643

PATIENT
  Age: 76 Year
  Sex: Male

DRUGS (13)
  1. NORVASC [Suspect]
     Active Substance: AMLODIPINE BESYLATE
     Indication: PRODUCT USED FOR UNKNOWN INDICATION
     Dosage: 10 MG, QD
     Route: 048
  2. LIORESAL [Suspect]
     Active Substance: BACLOFEN
     Dosage: REDUCED 10%
     Route: 037
  3. TOVIAZ [Suspect]
     Active Substance: FESOTERODINE FUMARATE
     Indication: PRODUCT USED FOR UNKNOWN INDICATION
     Dosage: 8 MG, QD
     Route: 048
  4. LIORESAL [Suspect]
     Active Substance: BACLOFEN
     Dosage: 363 UG, QD
     Route: 037
  5. LIORESAL [Suspect]
     Active Substance: BACLOFEN
     Dosage: 363.6 UG, QD
     Route: 037
  6. DIAZEPAM. [Suspect]
     Active Substance: DIAZEPAM
     Indication: PRODUCT USED FOR UNKNOWN INDICATION
     Dosage: 5 MG, PRN (AT BEDTIME)
     Route: 065
  7. COREG [Suspect]
     Active Substance: CARVEDILOL
     Indication: PRODUCT USED FOR UNKNOWN INDICATION
     Dosage: 12.5 MG, BID
     Route: 048
  8. PHENYTOIN. [Suspect]
     Active Substance: PHENYTOIN
     Indication: PRODUCT USED FOR UNKNOWN INDICATION
     Dosage: 400 MG, QD
     Route: 048
  9. PROZAC [Suspect]
     Active Substance: FLUOXETINE HYDROCHLORIDE
     Indication: PRODUCT USED FOR UNKNOWN INDICATION
     Dosage: 20 MG, QD
     Route: 048
  10. BACLOFEN. [Suspect]
     Active Substance: BACLOFEN
     Indication: PRODUCT USED FOR UNKNOWN INDICATION
     Dosage: 20 MG, PRN
     Route: 048
  11. LIORESAL [Suspect]
     Active Substance: BACLOFEN
     Indication: MUSCLE SPASTICITY
     Dosage: 460 UG, QD
     Route: 037
  12. LIORESAL [Suspect]
     Active Substance: BACLOFEN
     Dosage: 329 UG, QD
     Route: 037
     Dates: start: 20141117, end: 20141209
  13. MACROBID [Suspect]
     Active Substance: NITROFURANTOIN\NITROFURANTOIN MONOHYDRATE
     Indication: PRODUCT USED FOR UNKNOWN INDICATION
     Dosage: 100 MG, BID
     Route: 048

REACTIONS (12)
  - Gait disturbance [Unknown]
  - Wound dehiscence [Recovered/Resolved]
  - Weight bearing difficulty [Unknown]
  - Unevaluable event [Unknown]
  - Pocket erosion [Unknown]
  - Asthenia [Unknown]
  - Medical device site infection [Recovered/Resolved]
  - Muscle tightness [Unknown]
  - Performance status decreased [Recovered/Resolved]
  - Medical device site discharge [Not Recovered/Not Resolved]
  - Overdose [Unknown]
  - Drug withdrawal syndrome [Not Recovered/Not Resolved]

NARRATIVE: CASE EVENT DATE: 2011
